FAERS Safety Report 4665574-4 (Version None)
Quarter: 2005Q2

REPORT INFORMATION
  Report Type: 
  Country: None (occurrence: None)
  Receive Date: 20050519
  Receipt Date: 20050407
  Transmission Date: 20051028
  Serious: No
  Sender: FDA-Public Use
  Company Number: US-BRISTOL-MYERS SQUIBB COMPANY-12927158

PATIENT
  Sex: Male

DRUGS (1)
  1. MONOPRIL [Suspect]
     Dosage: GOES THROUGH 60 TABLETS A MONTH
     Route: 048

REACTIONS (1)
  - DYSGEUSIA [None]
